FAERS Safety Report 8522623-0 (Version None)
Quarter: 2012Q3

REPORT INFORMATION
  Report Type: 
  Country: None (occurrence: None)
  Receive Date: 20120719
  Receipt Date: 20120713
  Transmission Date: 20120928
  Serious: Yes (Hospitalization)
  Sender: FDA-Public Use
  Company Number: US-B.I. PHARMACEUTICALS,INC./RIDGEFIELD-2012-BP-13127BP

PATIENT
  Sex: Male

DRUGS (11)
  1. ADVAIR DISKUS 100/50 [Concomitant]
     Route: 055
  2. FERROUS SULFATE TAB [Concomitant]
  3. ASPIR-81 [Concomitant]
  4. HYDROCORTISONE [Concomitant]
  5. LASIX [Concomitant]
  6. PRADAXA [Suspect]
     Route: 048
     Dates: start: 20120312
  7. PRADAXA [Suspect]
     Indication: ATRIAL FIBRILLATION
     Dosage: 300 MG
     Route: 048
  8. COZAAR [Concomitant]
  9. DIGOXIN [Concomitant]
  10. CITRACAL + D [Concomitant]
  11. KETOCONAZOLE [Concomitant]
     Dates: start: 20111201

REACTIONS (2)
  - PRESYNCOPE [None]
  - DEHYDRATION [None]
